FAERS Safety Report 5220475-8 (Version None)
Quarter: 2006Q4

REPORT INFORMATION
  Report Type: 
  Country: None (occurrence: None)
  Receive Date: 20061201
  Receipt Date: 20060710
  Transmission Date: 20070319
  Serious: No
  Sender: FDA-Public Use
  Company Number: 2006PV017238

PATIENT
  Age: 45 Year
  Sex: Female
  Weight: 154.6766 kg

DRUGS (7)
  1. BYETTA [Suspect]
     Indication: DIABETES MELLITUS NON-INSULIN-DEPENDENT
     Dosage: SEE IMAGE
     Route: 058
     Dates: start: 20060602, end: 20060701
  2. BYETTA [Suspect]
     Indication: DIABETES MELLITUS NON-INSULIN-DEPENDENT
     Dosage: SEE IMAGE
     Route: 058
     Dates: start: 20060702
  3. METFORMIN HCL [Concomitant]
  4. STARLIX [Concomitant]
  5. ZOCOR [Concomitant]
  6. ALTACE [Concomitant]
  7. LYRICA [Concomitant]

REACTIONS (6)
  - BLOOD GLUCOSE DECREASED [None]
  - BLOOD GLUCOSE INCREASED [None]
  - EARLY SATIETY [None]
  - MENSTRUATION DELAYED [None]
  - PALPITATIONS [None]
  - TREMOR [None]
